FAERS Safety Report 8133664-X (Version None)
Quarter: 2012Q1

REPORT INFORMATION
  Report Type: 
  Country: None (occurrence: None)
  Receive Date: 20120213
  Receipt Date: 20120208
  Transmission Date: 20120608
  Serious: Yes (Death, Hospitalization)
  Sender: FDA-Public Use
  Company Number: US-B.I. PHARMACEUTICALS,INC./RIDGEFIELD-2011-BP-27693BP

PATIENT
  Sex: Female
  Weight: 72 kg

DRUGS (13)
  1. PRADAXA [Suspect]
     Indication: ATRIAL FIBRILLATION
     Dosage: 300 MG
     Route: 048
     Dates: start: 20111020, end: 20111206
  2. ASPIRIN [Concomitant]
     Dosage: 81 MG
  3. LOVASTATIN [Concomitant]
     Indication: HYPERLIPIDAEMIA
     Dosage: 40 MG
  4. SOLTALOL [Concomitant]
     Dosage: 80 MG
     Dates: start: 20111021, end: 20111206
  5. CLARITIN [Concomitant]
     Indication: HYPERSENSITIVITY
     Dosage: 10 MG
  6. CITALOPRAM HYDROBROMIDE [Concomitant]
     Dosage: 20 MG
  7. BETAPACE [Concomitant]
     Indication: ATRIAL FIBRILLATION
     Dosage: 160 MG
  8. LANTUS [Concomitant]
     Indication: DIABETES MELLITUS
  9. METFORMIN HCL [Concomitant]
     Indication: DIABETES MELLITUS
     Dosage: 2000 MG
  10. ACTOS [Concomitant]
     Dosage: 45 MG
  11. DIOVAN [Concomitant]
     Dosage: 160 MG
  12. PRADAXA [Suspect]
     Indication: COAGULOPATHY
  13. FLONASE [Concomitant]
     Dosage: 100 MCG

REACTIONS (2)
  - SUBARACHNOID HAEMORRHAGE [None]
  - CARDIAC ARREST [None]
